FAERS Safety Report 7633303-8 (Version None)
Quarter: 2011Q3

REPORT INFORMATION
  Report Type: 
  Country: None (occurrence: None)
  Receive Date: 20110725
  Receipt Date: 20110714
  Transmission Date: 20111222
  Serious: Yes (Hospitalization)
  Sender: FDA-Public Use
  Company Number: JP-ASTRAZENECA-2011SE43375

PATIENT
  Age: 63 Year
  Sex: Female

DRUGS (6)
  1. RISPERDAL [Concomitant]
     Route: 048
  2. SEROQUEL [Suspect]
     Route: 048
  3. SEROQUEL [Suspect]
     Route: 048
  4. DEPAKENE [Suspect]
     Route: 048
  5. DEPAKENE [Suspect]
     Route: 048
  6. DEPAKENE [Suspect]
     Route: 048

REACTIONS (1)
  - PANCYTOPENIA [None]
